FAERS Safety Report 7644770 (Version 5)
Quarter: 2019Q3

REPORT INFORMATION
  Report Type: Report from Study
  Country: JP (occurrence: JP)
  Receive Date: 20101028
  Receipt Date: 20190712
  Transmission Date: 20191005
  Serious: Yes (Death, Other)
  Sender: FDA-Public Use
  Company Number: PHHY2010JP71170

PATIENT
  Age: 69 Year
  Sex: Male
  Weight: 59 kg

DRUGS (18)
  1. AFINITOR [Suspect]
     Active Substance: EVEROLIMUS
     Indication: RENAL CELL CARCINOMA
     Dosage: 10 MG, QD
     Route: 048
     Dates: start: 20100810, end: 20100914
  2. CALCIUM POLYSTYRENE SULFONATE [Concomitant]
     Active Substance: CALCIUM POLYSTYRENE SULFONATE
     Indication: PRODUCT USED FOR UNKNOWN INDICATION
     Dosage: 50 G, UNK
     Route: 048
     Dates: start: 20091109
  3. NEXAVAR [Concomitant]
     Active Substance: SORAFENIB
     Indication: METASTATIC RENAL CELL CARCINOMA
     Dosage: 400 MG, UNK
     Route: 065
     Dates: start: 20090302, end: 20100331
  4. BLOPRESS [Concomitant]
     Active Substance: CANDESARTAN CILEXETIL
     Indication: PRODUCT USED FOR UNKNOWN INDICATION
     Dosage: 8 MG, UNK
     Route: 048
     Dates: start: 20100412
  5. PYDOXAL [Concomitant]
     Active Substance: PYRIDOXAL
     Indication: METASTATIC RENAL CELL CARCINOMA
     Dosage: 8 MG, UNK
     Route: 048
     Dates: start: 20100412
  6. ADALAT CC [Concomitant]
     Active Substance: NIFEDIPINE
     Indication: PRODUCT USED FOR UNKNOWN INDICATION
     Dosage: 80 MG, UNK
     Route: 048
     Dates: start: 20100412
  7. MYSLEE [Concomitant]
     Active Substance: ZOLPIDEM TARTRATE
     Indication: PRODUCT USED FOR UNKNOWN INDICATION
     Dosage: 10 MG, UNK
     Route: 048
     Dates: start: 20100630
  8. MUCOSOLVAN [Concomitant]
     Active Substance: AMBROXOL HYDROCHLORIDE
     Indication: METASTATIC RENAL CELL CARCINOMA
     Dosage: 45 MG, UNK
     Route: 048
     Dates: start: 20090914
  9. AFINITOR [Suspect]
     Active Substance: EVEROLIMUS
     Dosage: 10 MG, QD
     Route: 048
     Dates: start: 20100922, end: 20101007
  10. AFINITOR [Suspect]
     Active Substance: EVEROLIMUS
     Dosage: 10 MG, QD
     Route: 048
     Dates: start: 20101008
  11. ALTAT [Concomitant]
     Active Substance: ROXATIDINE ACETATE HYDROCHLORIDE
     Indication: PRODUCT USED FOR UNKNOWN INDICATION
     Dosage: 75 MG, UNK
     Route: 048
     Dates: start: 20100709
  12. AFINITOR [Suspect]
     Active Substance: EVEROLIMUS
     Indication: METASTATIC RENAL CELL CARCINOMA
     Dosage: 5 MG, QD
     Route: 048
     Dates: start: 20100915, end: 20100921
  13. PURSENNID [Concomitant]
     Indication: PRODUCT USED FOR UNKNOWN INDICATION
     Dosage: 24 MG, UNK
     Route: 048
     Dates: start: 20091221
  14. EXCEGRAN [Concomitant]
     Active Substance: ZONISAMIDE
     Indication: METASTATIC RENAL CELL CARCINOMA
     Dosage: 200 MG, UNK
     Route: 048
     Dates: start: 20090629
  15. KREMEZIN [Concomitant]
     Active Substance: ACTIVATED CHARCOAL
     Indication: PRODUCT USED FOR UNKNOWN INDICATION
     Dosage: 2400 MG, UNK
     Route: 048
     Dates: start: 20100315
  16. CODEINE PHOSPHATE [Concomitant]
     Active Substance: CODEINE PHOSPHATE
     Indication: METASTATIC RENAL CELL CARCINOMA
     Dosage: 60 MG, UNK
     Route: 048
     Dates: start: 20100915
  17. SUNITINIB MALATE. [Concomitant]
     Active Substance: SUNITINIB MALATE
     Indication: METASTATIC RENAL CELL CARCINOMA
     Dosage: 37.5 MG, UNK
     Route: 048
     Dates: start: 20100413, end: 20100720
  18. MAGLAX [Concomitant]
     Active Substance: MAGNESIUM OXIDE
     Indication: PRODUCT USED FOR UNKNOWN INDICATION
     Dosage: 990 MG, UNK
     Route: 048
     Dates: start: 20090709

REACTIONS (12)
  - Anaemia [Not Recovered/Not Resolved]
  - Blood creatinine increased [Not Recovered/Not Resolved]
  - Pulmonary oedema [Fatal]
  - Acute respiratory distress syndrome [Fatal]
  - Hyperglycaemia [Recovering/Resolving]
  - Respiratory failure [Fatal]
  - C-reactive protein increased [Unknown]
  - Blood lactic acid increased [Unknown]
  - Cardiac arrest [Unknown]
  - Low density lipoprotein increased [Not Recovered/Not Resolved]
  - Blood triglycerides increased [Not Recovered/Not Resolved]
  - Gamma-glutamyltransferase increased [Not Recovered/Not Resolved]

NARRATIVE: CASE EVENT DATE: 20100907
